FAERS Safety Report 12821142 (Version 1)
Quarter: 2016Q4

REPORT INFORMATION
  Report Type: Spontaneous
  Country: US (occurrence: US)
  Receive Date: 20161006
  Receipt Date: 20161006
  Transmission Date: 20170207
  Serious: No
  Sender: FDA-Public Use
  Company Number: US-PFIZER INC-2016468319

PATIENT
  Age: 51 Year
  Sex: Female

DRUGS (4)
  1. FENTANYL CITRATE. [Suspect]
     Active Substance: FENTANYL CITRATE
  2. DEMEROL [Suspect]
     Active Substance: MEPERIDINE HYDROCHLORIDE
  3. TORADOL [Suspect]
     Active Substance: KETOROLAC TROMETHAMINE
  4. VISTARIL [Suspect]
     Active Substance: HYDROXYZINE PAMOATE

REACTIONS (1)
  - Drug hypersensitivity [Unknown]
